FAERS Safety Report 8461597 (Version 2)
Quarter: 2012Q4

REPORT INFORMATION
  Report Type: 
  Country: US (occurrence: US)
  Receive Date: 20120315
  Receipt Date: 20120911
  Transmission Date: 20130627
  Serious: Yes (Hospitalization)
  Sender: FDA-Public Use
  Company Number: US-BAYER-2012-023803

PATIENT
  Age: 18 Year
  Sex: Female
  Weight: 115.65 kg

DRUGS (2)
  1. YAZ [Suspect]
     Dosage: UNK
     Route: 048
     Dates: start: 200101, end: 2002
  2. YASMIN [Suspect]
     Dosage: UNK
     Route: 048
     Dates: start: 200101, end: 2002

REACTIONS (1)
  - Cholelithiasis [None]
